FAERS Safety Report 25554102 (Version 2)
Quarter: 2025Q3

REPORT INFORMATION
  Report Type: Spontaneous
  Country: EU (occurrence: EU)
  Receive Date: 20250715
  Receipt Date: 20250729
  Transmission Date: 20251021
  Serious: Yes (Hospitalization, Other)
  Sender: AUROBINDO
  Company Number: EU-AFSSAPS-CF2025000356

PATIENT
  Age: 17 Year
  Sex: Male
  Weight: 55.6 kg

DRUGS (8)
  1. FLUCONAZOLE [Suspect]
     Active Substance: FLUCONAZOLE
     Indication: Osseous cryptococcosis
     Dosage: 400 MILLIGRAM, TWO TIMES A DAY
     Route: 048
     Dates: start: 20250408
  2. TENOFOVIR DISOPROXIL FUMARATE [Suspect]
     Active Substance: TENOFOVIR DISOPROXIL FUMARATE
     Indication: Viral hepatitis carrier
     Dosage: 245 MILLIGRAM, ONCE A DAY
     Route: 048
     Dates: start: 202406
  3. DICLOFENAC [Suspect]
     Active Substance: DICLOFENAC
     Indication: Biliary tract operation
     Route: 054
     Dates: start: 20250522, end: 20250522
  4. MYFORTIC [Suspect]
     Active Substance: MYCOPHENOLATE SODIUM
     Indication: Prophylaxis against transplant rejection
     Dosage: 720 MILLIGRAM, TWO TIMES A DAY
     Route: 048
     Dates: start: 20250522
  5. CELLCEPT [Suspect]
     Active Substance: MYCOPHENOLATE MOFETIL
     Indication: Prophylaxis against transplant rejection
     Dosage: 500 MILLIGRAM, TWO TIMES A DAY
     Route: 048
     Dates: start: 20241013, end: 20250520
  6. ENVARSUS XR [Suspect]
     Active Substance: TACROLIMUS
     Indication: Prophylaxis against transplant rejection
     Dosage: 1 MILLIGRAM, TWO TIMES A DAY
     Route: 048
     Dates: start: 20241013
  7. AMBISOME [Suspect]
     Active Substance: AMPHOTERICIN B
     Indication: Osseous cryptococcosis
     Dosage: 3 MILLIGRAM/KILOGRAM, ONCE A DAY
     Route: 042
     Dates: start: 20250328, end: 20250408
  8. DICLOFENAC [Suspect]
     Active Substance: DICLOFENAC
     Indication: Biliary tract operation
     Dosage: 100 MILLIGRAM, ONCE A DAY (1 TOTAL)
     Route: 054
     Dates: start: 20250522, end: 20250522

REACTIONS (2)
  - Acute kidney injury [Recovered/Resolved]
  - Skin hyperpigmentation [Unknown]

NARRATIVE: CASE EVENT DATE: 20250516
